FAERS Safety Report 21616639 (Version 1)
Quarter: 2022Q4

REPORT INFORMATION
  Report Type: Report from Study
  Country: US (occurrence: US)
  Receive Date: 20221118
  Receipt Date: 20221118
  Transmission Date: 20230113
  Serious: No
  Sender: FDA-Public Use
  Company Number: US-ABBVIE-4171870

PATIENT
  Sex: Female

DRUGS (2)
  1. SKYRIZI [Suspect]
     Active Substance: RISANKIZUMAB-RZAA
     Indication: Product used for unknown indication
     Route: 058
  2. Moderna COVID19 vaccine [Concomitant]
     Indication: COVID-19 immunisation
     Dosage: 1 IN 1 DAY
     Route: 030

REACTIONS (2)
  - Rash [Unknown]
  - Pruritus [Unknown]
